FAERS Safety Report 17174292 (Version 1)
Quarter: 2019Q4

REPORT INFORMATION
  Report Type: Spontaneous
  Country: US (occurrence: US)
  Receive Date: 20191219
  Receipt Date: 20191219
  Transmission Date: 20200122
  Serious: Yes (Other)
  Sender: FDA-Public Use
  Company Number: US-EMCURE PHARMACEUTICALS LTD-2019-EPL-1177

PATIENT
  Age: 28 Year
  Sex: Female

DRUGS (1)
  1. ACETAZOLAMIDE. [Suspect]
     Active Substance: ACETAZOLAMIDE
     Indication: IDIOPATHIC INTRACRANIAL HYPERTENSION
     Dosage: 1500 MILLIGRAM, QD, THREE DIVIDED DOSE

REACTIONS (5)
  - Maternal exposure during pregnancy [Unknown]
  - Premature labour [Unknown]
  - Preterm premature rupture of membranes [Unknown]
  - Off label use [Unknown]
  - Tachycardia foetal [Unknown]
